FAERS Safety Report 15700516 (Version 1)
Quarter: 2018Q4

REPORT INFORMATION
  Report Type: Spontaneous
  Country: US (occurrence: US)
  Receive Date: 20181207
  Receipt Date: 20181207
  Transmission Date: 20190205
  Serious: Yes (Other)
  Sender: FDA-Public Use
  Company Number: US-ASTRAZENECA-2018SF60565

PATIENT
  Sex: Male

DRUGS (1)
  1. PRILOSEC [Suspect]
     Active Substance: OMEPRAZOLE MAGNESIUM
     Dosage: UNK
     Route: 048

REACTIONS (8)
  - Swelling [Unknown]
  - Thrombosis [Unknown]
  - Diabetes mellitus [Unknown]
  - Hypertension [Unknown]
  - Diarrhoea [Unknown]
  - Renal failure [Unknown]
  - Abnormal loss of weight [Unknown]
  - Nephropathy [Unknown]
